FAERS Safety Report 20629167 (Version 1)
Quarter: 2022Q1

REPORT INFORMATION
  Report Type: Spontaneous
  Country: US (occurrence: US)
  Receive Date: 20220323
  Receipt Date: 20220323
  Transmission Date: 20220424
  Serious: Yes (Hospitalization, Other)
  Sender: FDA-Public Use
  Company Number: US-PFIZER INC-202200417854

PATIENT
  Age: 75 Year
  Sex: Male

DRUGS (1)
  1. VYNDAMAX [Suspect]
     Active Substance: TAFAMIDIS
     Dosage: 61 MG

REACTIONS (6)
  - Cardiac failure congestive [Unknown]
  - Renal impairment [Recovering/Resolving]
  - Pleural effusion [Unknown]
  - Oedema [Unknown]
  - Urine output decreased [Recovering/Resolving]
  - Diet noncompliance [Unknown]
